FAERS Safety Report 8603134 (Version 2)
Quarter: 2013Q2

REPORT INFORMATION
  Report Type: Report from Study
  Country: IT (occurrence: IT)
  Receive Date: 20120607
  Receipt Date: 20130515
  Transmission Date: 20140414
  Serious: Yes (Other)
  Sender: FDA-Public Use
  Company Number: IT-ROCHE-795735

PATIENT
  Sex: 0

DRUGS (8)
  1. RITUXIMAB [Suspect]
     Indication: B-CELL LYMPHOMA
     Dosage: 8 DOSES - RCVP ARM, 6 DOSES - RCHOP ARM
     Route: 042
  2. MITOXANTRONE [Suspect]
     Indication: B-CELL LYMPHOMA
     Dosage: DAY 1
     Route: 042
  3. CYCLOPHOSPHAMIDE [Suspect]
     Indication: B-CELL LYMPHOMA
     Dosage: 8 DOSES - RCVP ARM, 6 DOSES - RCHOP ARM
     Route: 042
  4. VINCRISTINE [Suspect]
     Indication: B-CELL LYMPHOMA
     Dosage: 8 DOSES - RCVP ARM, 6 DOSES - RCHOP ARM
     Route: 042
  5. PREDNISONE [Suspect]
     Indication: B-CELL LYMPHOMA
     Dosage: 8 DOSES - RCVP ARM, 6 DOSES - RCHOP ARM
     Route: 048
  6. PREDNISONE [Suspect]
     Route: 048
  7. DOXORUBICIN [Suspect]
     Indication: B-CELL LYMPHOMA
     Dosage: 8 DOSES - RCVP ARM, 6 DOSES - RCHOP ARM
     Route: 042
  8. FLUDARABINE [Suspect]
     Indication: B-CELL LYMPHOMA
     Dosage: DAY 1-3
     Route: 042

REACTIONS (6)
  - Neutropenia [Recovered/Resolved]
  - Neoplasm malignant [Unknown]
  - Thrombocytopenia [Unknown]
  - Infection [Unknown]
  - Neurotoxicity [Unknown]
  - Cardiac disorder [Unknown]
